FAERS Safety Report 5677477-7 (Version None)
Quarter: 2008Q1

REPORT INFORMATION
  Report Type: 
  Country: None (occurrence: None)
  Receive Date: 20080318
  Receipt Date: 20080303
  Transmission Date: 20080703
  Serious: Yes (Life-Threatening, Hospitalization)
  Sender: FDA-Public Use
  Company Number: 261246

PATIENT
  Age: 33 Year
  Sex: Female
  Weight: 56 kg

DRUGS (4)
  1. NOVOSEVEN [Suspect]
     Indication: HYPOVOLAEMIC SHOCK
     Dosage: 60 UG/KG, SINGLE; INTRAVENOUS, 120 UG/KG, SINGLE; INTRAVENOUS
     Route: 042
     Dates: start: 20050529, end: 20050529
  2. NOVOSEVEN [Suspect]
     Indication: POSTPARTUM HAEMORRHAGE
     Dosage: 60 UG/KG, SINGLE; INTRAVENOUS, 120 UG/KG, SINGLE; INTRAVENOUS
     Route: 042
     Dates: start: 20050529, end: 20050529
  3. SYNTOCINON [Concomitant]
  4. NALADOR (SULPROSTONE) [Concomitant]

REACTIONS (6)
  - ASTHENIA [None]
  - ATELECTASIS [None]
  - COAGULOPATHY [None]
  - DYSPNOEA [None]
  - LUNG DISORDER [None]
  - SPLENIC INFARCTION [None]
